FAERS Safety Report 6161813-1 (Version None)
Quarter: 2009Q2

REPORT INFORMATION
  Report Type: 
  Country: None (occurrence: None)
  Receive Date: 20090421
  Receipt Date: 20090412
  Transmission Date: 20091009
  Serious: Yes (Other)
  Sender: FDA-Public Use
  Company Number: GB-ROCHE-627424

PATIENT
  Sex: Male
  Weight: 136.5 kg

DRUGS (8)
  1. ORLISTAT [Suspect]
     Indication: OBESITY
     Route: 048
     Dates: start: 20090323
  2. FINASTERIDE [Concomitant]
     Indication: PROSTATE CANCER
     Route: 048
  3. LANSOPRAZOLE [Concomitant]
     Indication: UNEVALUABLE EVENT
     Route: 048
  4. SLOW-TRASICOR [Concomitant]
     Indication: BLOOD PRESSURE
     Dosage: DRUG: SLOW TRANSICOR
     Route: 048
  5. INDAPAMIDE [Concomitant]
     Indication: BLOOD PRESSURE
     Route: 048
  6. PERINDOPRIL [Concomitant]
     Indication: BLOOD PRESSURE
     Dosage: DRUG: PERINDIPRIL
     Route: 048
  7. PAROXETINE HCL [Concomitant]
     Indication: DEPRESSION
     Dosage: DRUG: PARAXETINE
     Route: 048
  8. SIMVASTATIN [Concomitant]
     Route: 048

REACTIONS (1)
  - DIABETES MELLITUS [None]
